FAERS Safety Report 13963168 (Version 1)
Quarter: 2017Q3

REPORT INFORMATION
  Report Type: Report from Study
  Country: None (occurrence: BR)
  Receive Date: 20170913
  Receipt Date: 20170913
  Transmission Date: 20171128
  Serious: Yes (Hospitalization, Other)
  Sender: FDA-Public Use
  Company Number: BR-ABBVIE-16K-020-1703303-00

PATIENT
  Sex: Female
  Weight: 51 kg

DRUGS (1)
  1. HUMIRA [Suspect]
     Active Substance: ADALIMUMAB
     Indication: RHEUMATOID ARTHRITIS
     Route: 058
     Dates: start: 20110101

REACTIONS (7)
  - Fall [Unknown]
  - Fracture pain [Not Recovered/Not Resolved]
  - Diabetes mellitus [Recovered/Resolved]
  - Femur fracture [Recovering/Resolving]
  - Osteoarthritis [Not Recovered/Not Resolved]
  - Gait disturbance [Unknown]
  - Osteoporosis [Not Recovered/Not Resolved]

NARRATIVE: CASE EVENT DATE: 2013
